FAERS Safety Report 26173246 (Version 1)
Quarter: 2025Q4

REPORT INFORMATION
  Report Type: Spontaneous
  Country: US (occurrence: US)
  Receive Date: 20251218
  Receipt Date: 20251218
  Transmission Date: 20260117
  Serious: Yes (Hospitalization, Other)
  Sender: PROCTER AND GAMBLE
  Company Number: US-PROCTER+GAMBLE-PH25021445

PATIENT
  Age: 60 Year
  Sex: Female

DRUGS (4)
  1. VICKS NYQUIL [Suspect]
     Active Substance: ACETAMINOPHEN\DEXTROMETHORPHAN HYDROBROMIDE\DOXYLAMINE SUCCINATE
     Indication: Headache
     Dosage: UNK
  2. DAYQUIL NOS [Suspect]
     Active Substance: ACETAMINOPHEN\BROMPHENIRAMINE\CHLORPHENIRAMINE\DEXTROMETHORPHAN\GUAIFENESIN\IBUPROFEN\PHENYLEPHRINE\
     Indication: Headache
     Dosage: UNK
  3. TYLENOL [Suspect]
     Active Substance: ACETAMINOPHEN
     Indication: Headache
     Dosage: UNK
  4. HERBALS [Suspect]
     Active Substance: HERBALS
     Indication: Headache
     Dosage: UNK

REACTIONS (19)
  - Liver injury [Recovering/Resolving]
  - Metabolic acidosis [Recovering/Resolving]
  - Confusional state [Recovering/Resolving]
  - Mental status changes [Recovering/Resolving]
  - Blood glucose increased [Recovering/Resolving]
  - Hypertransaminasaemia [Recovering/Resolving]
  - Hypotension [Unknown]
  - Platelet count decreased [Unknown]
  - Overdose [Unknown]
  - Hepatic function abnormal [Recovering/Resolving]
  - Alanine aminotransferase increased [Recovering/Resolving]
  - Ammonia increased [Recovering/Resolving]
  - Aspartate aminotransferase increased [Recovering/Resolving]
  - Blood bilirubin increased [Recovering/Resolving]
  - Blood pressure systolic decreased [Unknown]
  - Blood pressure diastolic decreased [Unknown]
  - International normalised ratio increased [Recovering/Resolving]
  - Prothrombin time prolonged [Unknown]
  - Food interaction [Unknown]
